FAERS Safety Report 7575980-6 (Version None)
Quarter: 2011Q2

REPORT INFORMATION
  Report Type: 
  Country: None (occurrence: None)
  Receive Date: 20110628
  Receipt Date: 20110104
  Transmission Date: 20111010
  Serious: Yes (Other)
  Sender: FDA-Public Use
  Company Number: US-BAYER-201036977NA

PATIENT
  Age: 40 Year
  Sex: Female
  Weight: 81.633 kg

DRUGS (12)
  1. ZELNORM [Concomitant]
     Dosage: UNK
     Route: 048
     Dates: start: 20060401
  2. FISH OIL [Concomitant]
     Dosage: UNK
     Dates: start: 20060401
  3. YASMIN [Suspect]
     Indication: MENSTRUAL CYCLE MANAGEMENT
     Dosage: UNK UNK, UNK
     Route: 048
     Dates: start: 20050801, end: 20091001
  4. YASMIN [Suspect]
     Dosage: UNK
     Dates: start: 20050801, end: 20091001
  5. OXAPROZIN [Concomitant]
     Dosage: 600 MG, UNK
     Dates: start: 20060201
  6. MOTILIUM [Concomitant]
     Dosage: 300 MG, TID
  7. AZITHROMYCIN [Concomitant]
     Dosage: 250 MG, UNK
     Route: 048
     Dates: start: 20060210
  8. FLAX SEED OIL [Concomitant]
     Dosage: UNK
     Dates: start: 20060401
  9. OMEPRAZOLE [Concomitant]
     Dosage: 20 MG, UNK
     Dates: start: 20060401
  10. SUCRALFATE [Concomitant]
     Dosage: UNK
     Route: 048
     Dates: start: 20060401
  11. MOTILIUM [Concomitant]
     Dosage: 10 UNK, UNK
     Route: 048
     Dates: start: 20060401
  12. ALBUTEROL SULFATE AUTOHALER [Concomitant]
     Dosage: UNK
     Dates: start: 20060210

REACTIONS (4)
  - GALLBLADDER DISORDER [None]
  - CHOLESTEROSIS [None]
  - EMOTIONAL DISTRESS [None]
  - BILIARY DYSKINESIA [None]
